FAERS Safety Report 7612035-6 (Version None)
Quarter: 2011Q3

REPORT INFORMATION
  Report Type: 
  Country: None (occurrence: None)
  Receive Date: 20110715
  Receipt Date: 20110708
  Transmission Date: 20111222
  Serious: Yes (Hospitalization)
  Sender: FDA-Public Use
  Company Number: RO-ABBOTT-11P-135-0837457-00

PATIENT
  Sex: Male
  Weight: 95 kg

DRUGS (1)
  1. HUMIRA [Suspect]
     Indication: PSORIASIS
     Route: 058
     Dates: start: 20110301, end: 20110601

REACTIONS (5)
  - BREAST PAIN [None]
  - GYNAECOMASTIA [None]
  - PSORIASIS [None]
  - BREAST NEOPLASM [None]
  - LYMPHADENOPATHY [None]
